FAERS Safety Report 5771700-6 (Version None)
Quarter: 2008Q2

REPORT INFORMATION
  Report Type: 
  Country: None (occurrence: None)
  Receive Date: 20080613
  Receipt Date: 20080606
  Transmission Date: 20081010
  Serious: Yes (Death, Life-Threatening, Hospitalization, Disabling)
  Sender: FDA-Public Use
  Company Number: US-BAYER-200814068NA

PATIENT
  Age: 90 Year
  Sex: Female
  Weight: 57 kg

DRUGS (19)
  1. CIPROFLOXACIN HCL [Suspect]
     Indication: CYSTITIS
     Dosage: TOTAL DAILY DOSE: 1000 MG
     Route: 048
     Dates: start: 20071011, end: 20071012
  2. XANAX [Concomitant]
     Dosage: TOTAL DAILY DOSE: 0.5 MG
     Route: 048
  3. LISINOPRIL [Concomitant]
     Dosage: TOTAL DAILY DOSE: 40 MG
     Route: 048
  4. METOPROLOL [Concomitant]
     Dosage: TOTAL DAILY DOSE: 100 MG
     Route: 048
  5. SYNTHROID [Concomitant]
     Dosage: TOTAL DAILY DOSE: 50 ?G
     Route: 048
  6. ACTONEL [Concomitant]
     Route: 048
  7. COLACE [Concomitant]
     Route: 048
  8. FOLATE SODIUM [Concomitant]
  9. NORVASC [Concomitant]
     Dosage: TOTAL DAILY DOSE: 5 MG
     Route: 048
  10. VITAMIN B-12 [Concomitant]
     Dosage: TOTAL DAILY DOSE: 1000 ?G
     Route: 058
  11. DULCOLAX [Concomitant]
     Route: 054
  12. INAPSINE [Concomitant]
  13. VASOTEC [Concomitant]
  14. HYDRALAZINE HCL [Concomitant]
  15. NORCO [Concomitant]
  16. MAALOX [Concomitant]
  17. MILK OF MAGNESIA [Concomitant]
  18. POTASSIUM CHLORIDE [Concomitant]
  19. MAGNESIUM [Concomitant]

REACTIONS (13)
  - ABASIA [None]
  - CARDIAC FAILURE CONGESTIVE [None]
  - DYSPHAGIA [None]
  - ERYTHEMA [None]
  - GUILLAIN-BARRE SYNDROME [None]
  - HYPOALBUMINAEMIA [None]
  - HYPOKALAEMIA [None]
  - JOINT SWELLING [None]
  - MUSCULAR WEAKNESS [None]
  - OEDEMA PERIPHERAL [None]
  - PARALYSIS [None]
  - PNEUMONIA [None]
  - RESPIRATORY FAILURE [None]
